FAERS Safety Report 9089517 (Version 1)
Quarter: 2013Q1

REPORT INFORMATION
  Report Type: Spontaneous
  Country: US (occurrence: US)
  Receive Date: 20130201
  Receipt Date: 20130201
  Transmission Date: 20140127
  Serious: No
  Sender: FDA-Public Use
  Company Number: US-GALDERMA-US-GDP-12415334

PATIENT
  Age: 18 Year
  Sex: Female

DRUGS (4)
  1. EPIDUO (ADAPALENE) [Suspect]
     Indication: ACNE
     Route: 061
     Dates: start: 20121003
  2. EPIDUO (ADAPALENE) [Suspect]
     Route: 061
     Dates: start: 2011
  3. CETAPHIL DERMACONTROL OIL CONTROL FOAM WASH [Concomitant]
     Indication: THERAPEUTIC SKIN CARE TOPICAL
     Route: 061
  4. FACIAL MASK [Concomitant]
     Indication: THERAPEUTIC SKIN CARE TOPICAL
     Route: 061

REACTIONS (5)
  - Rash macular [Not Recovered/Not Resolved]
  - Dry skin [Not Recovered/Not Resolved]
  - Erythema [Not Recovered/Not Resolved]
  - Skin burning sensation [Not Recovered/Not Resolved]
  - Skin exfoliation [Not Recovered/Not Resolved]
